FAERS Safety Report 18706068 (Version 1)
Quarter: 2021Q1

REPORT INFORMATION
  Report Type: Spontaneous
  Country: US (occurrence: US)
  Receive Date: 20210106
  Receipt Date: 20210106
  Transmission Date: 20210419
  Serious: Yes (Death, Hospitalization, Other)
  Sender: FDA-Public Use
  Company Number: US-JNJFOC-20201254975

PATIENT
  Age: 5 Decade
  Sex: Female
  Weight: 59.02 kg

DRUGS (1)
  1. JBABY BABY POWDER UNSPECIFIED (ZINC OXIDE) [Suspect]
     Active Substance: ZINC OXIDE
     Indication: PRODUCT USED FOR UNKNOWN INDICATION
     Dosage: JUST THE DIRECTION STICK ON THE BOTTLES.
     Route: 061
     Dates: start: 1970

REACTIONS (1)
  - Ovarian cancer [Fatal]

NARRATIVE: CASE EVENT DATE: 2015
